FAERS Safety Report 4773918-8 (Version None)
Quarter: 2005Q3

REPORT INFORMATION
  Report Type: 
  Country: None (occurrence: None)
  Receive Date: 20050919
  Receipt Date: 20050902
  Transmission Date: 20060218
  Serious: Yes (Hospitalization)
  Sender: FDA-Public Use
  Company Number: 2005PV001546

PATIENT
  Sex: Female

DRUGS (1)
  1. BYETTA [Suspect]
     Dosage: 5MCG;BID;SC
     Route: 058
     Dates: start: 20050701

REACTIONS (2)
  - CONSTIPATION [None]
  - NAUSEA [None]
